FAERS Safety Report 21088245 (Version 1)
Quarter: 2022Q3

REPORT INFORMATION
  Report Type: Report from Study
  Country: US (occurrence: US)
  Receive Date: 20220715
  Receipt Date: 20220715
  Transmission Date: 20221027
  Serious: Yes (Hospitalization)
  Sender: FDA-Public Use
  Company Number: US-BAYER-2022A072165

PATIENT
  Age: 47 Year
  Sex: Female

DRUGS (1)
  1. STIVARGA [Suspect]
     Active Substance: REGORAFENIB
     Indication: Colorectal cancer
     Dosage: DAILY DOSE 160 MG FOR 21 DAYS ON AND 7 DAYS OFF AFTER A LOW FAT MEAL
     Route: 048
     Dates: start: 20220511, end: 202206

REACTIONS (10)
  - Loss of consciousness [Recovering/Resolving]
  - Visual impairment [Recovering/Resolving]
  - Hepatic infection [Recovering/Resolving]
  - Nausea [Recovering/Resolving]
  - Jaundice [Recovered/Resolved]
  - Cough [Unknown]
  - Decreased activity [Unknown]
  - Heart rate increased [Unknown]
  - Blood pressure increased [Unknown]
  - Nausea [Unknown]

NARRATIVE: CASE EVENT DATE: 20220501
